FAERS Safety Report 16907995 (Version 1)
Quarter: 2019Q4

REPORT INFORMATION
  Report Type: Spontaneous
  Country: US (occurrence: US)
  Receive Date: 20191011
  Receipt Date: 20191011
  Transmission Date: 20200122
  Serious: Yes (Life-Threatening, Hospitalization)
  Sender: FDA-Public Use
  Company Number: US-MYLANLABS-2019M1095159

PATIENT
  Age: 52 Year
  Sex: Male

DRUGS (4)
  1. AMINOCAPROIC ACID. [Suspect]
     Active Substance: AMINOCAPROIC ACID
     Indication: PERICARDIAL HAEMORRHAGE
  2. DESMOPRESSIN [Suspect]
     Active Substance: DESMOPRESSIN
     Indication: PERICARDIAL HAEMORRHAGE
  3. AMINOCAPROIC ACID. [Suspect]
     Active Substance: AMINOCAPROIC ACID
     Indication: HAEMOTHORAX
     Dosage: RECEIVED 2 DOSES OF AMINOCAPROIC ACID
     Route: 065
  4. DESMOPRESSIN [Suspect]
     Active Substance: DESMOPRESSIN
     Indication: HAEMOTHORAX
     Dosage: RECEIVED 1 DOSE OF DESMOPRESSIN
     Route: 065

REACTIONS (1)
  - Drug ineffective [Unknown]
